FAERS Safety Report 16791130 (Version 1)
Quarter: 2019Q3

REPORT INFORMATION
  Report Type: Spontaneous
  Country: US (occurrence: US)
  Receive Date: 20190910
  Receipt Date: 20190910
  Transmission Date: 20191005
  Serious: No
  Sender: FDA-Public Use
  Company Number: US-PERRIGO-19US005748

PATIENT
  Sex: Female

DRUGS (2)
  1. EVAMIST [Suspect]
     Active Substance: ESTRADIOL
     Indication: MENOPAUSE
     Dosage: 4.59 MG, QD
     Route: 061
     Dates: end: 20190507
  2. EVAMIST [Suspect]
     Active Substance: ESTRADIOL
     Dosage: PEA SIZE AMOUNT, QD
     Route: 061
     Dates: start: 20190428, end: 20190507

REACTIONS (1)
  - Incorrect dose administered [Recovered/Resolved]

NARRATIVE: CASE EVENT DATE: 20190428
